FAERS Safety Report 8842510 (Version 2)
Quarter: 2015Q2

REPORT INFORMATION
  Report Type: Report from Study
  Country: US (occurrence: US)
  Receive Date: 20121016
  Receipt Date: 20150612
  Transmission Date: 20150821
  Serious: Yes (Death)
  Sender: FDA-Public Use
  Company Number: US-ROCHE-1132101

PATIENT
  Sex: Female

DRUGS (3)
  1. OXALIPLATIN. [Concomitant]
     Active Substance: OXALIPLATIN
     Route: 042
  2. XELODA [Suspect]
     Active Substance: CAPECITABINE
     Indication: OVARIAN CANCER
     Dosage: 2 TABLET ONCE IN 12HOURS, 30 MINS AFTER MEAL
     Route: 048
  3. XELODA [Suspect]
     Active Substance: CAPECITABINE
     Dosage: 1 TABLET ONCE IN 12HOURS,30 MINS AFTER MEAL
     Route: 048

REACTIONS (2)
  - Death [Fatal]
  - Off label use [Unknown]
